FAERS Safety Report 19158670 (Version 2)
Quarter: 2021Q2

REPORT INFORMATION
  Report Type: Spontaneous
  Country: US (occurrence: US)
  Receive Date: 20210420
  Receipt Date: 20210503
  Transmission Date: 20210717
  Serious: Yes (Other)
  Sender: FDA-Public Use
  Company Number: US-COOPERSURGICAL, INC.-US-2021CPS001008

PATIENT
  Sex: Female

DRUGS (1)
  1. PARAGARD T 380A [Suspect]
     Active Substance: COPPER
     Indication: CONTRACEPTION
     Dosage: UNK
     Route: 015
     Dates: start: 2014

REACTIONS (6)
  - Complication of device removal [Not Recovered/Not Resolved]
  - Procedural haemorrhage [Unknown]
  - Fibromyalgia [Unknown]
  - Procedural pain [Unknown]
  - Embedded device [Unknown]
  - Adverse event [Unknown]

NARRATIVE: CASE EVENT DATE: 202104
